FAERS Safety Report 5051737-5 (Version None)
Quarter: 2006Q3

REPORT INFORMATION
  Report Type: 
  Country: None (occurrence: None)
  Receive Date: 20060711
  Receipt Date: 20060703
  Transmission Date: 20061208
  Serious: Yes (Death, Hospitalization)
  Sender: FDA-Public Use
  Company Number: 200610847BWH

PATIENT
  Age: 64 Year
  Sex: Female
  Weight: 63.5036 kg

DRUGS (14)
  1. NEXAVAR [Suspect]
     Indication: RENAL CELL CARCINOMA STAGE UNSPECIFIED
     Dosage: SEE IMAGE
     Route: 048
     Dates: start: 20060209, end: 20060212
  2. NEXAVAR [Suspect]
     Indication: RENAL CELL CARCINOMA STAGE UNSPECIFIED
     Dosage: SEE IMAGE
     Route: 048
     Dates: start: 20060201
  3. FLEXERIL [Concomitant]
  4. PERCOCET [Concomitant]
  5. NEURONTIN [Concomitant]
  6. VITAMINS NOS [Concomitant]
  7. COLACE [Concomitant]
  8. LYSINE [Concomitant]
  9. REJUVEX [Concomitant]
  10. COQ10 [Concomitant]
  11. MARINOL [Concomitant]
  12. ZOMETA [Concomitant]
  13. PROCRIT [Concomitant]
  14. COLACE [Concomitant]

REACTIONS (9)
  - CLOSTRIDIUM DIFFICILE COLITIS [None]
  - DEHYDRATION [None]
  - METASTASES TO GASTROINTESTINAL TRACT [None]
  - METASTASES TO STOMACH [None]
  - METASTATIC RENAL CELL CARCINOMA [None]
  - NAUSEA [None]
  - PAIN IN EXTREMITY [None]
  - SMALL INTESTINAL OBSTRUCTION [None]
  - VOMITING [None]
